FAERS Safety Report 7632521 (Version 3)
Quarter: 2012Q4

REPORT INFORMATION
  Report Type: 
  Country: US (occurrence: US)
  Receive Date: 20101018
  Receipt Date: 20121004
  Transmission Date: 20130627
  Serious: Yes (Hospitalization)
  Sender: FDA-Public Use
  Company Number: US-US-EMD SERONO, INC.-7020779

PATIENT
  Age: 37 None
  Sex: Male

DRUGS (13)
  1. REBIF [Suspect]
     Indication: MULTIPLE SCLEROSIS
     Route: 058
     Dates: start: 20091007, end: 20110203
  2. REBIF [Suspect]
     Route: 058
     Dates: start: 20111118
  3. UNSPECIFIED MEDICATION [Concomitant]
     Indication: DEPRESSION
  4. NEURONTIN [Concomitant]
     Indication: CONVULSION
  5. NEURONTIN [Concomitant]
     Indication: PAIN
  6. BACLOFEN [Concomitant]
     Indication: MUSCLE SPASMS
  7. BACLOFEN [Concomitant]
     Indication: MUSCLE SPASTICITY
  8. TIZANIDINE [Concomitant]
     Indication: MUSCLE SPASMS
  9. TIZANIDINE [Concomitant]
     Indication: MUSCLE SPASTICITY
  10. DEPAKOTE [Concomitant]
     Indication: MOOD SWINGS
     Route: 048
  11. SINGULAIR [Concomitant]
     Indication: ASTHMA
  12. FLOVENT [Concomitant]
     Indication: ASTHMA
  13. VENTOLIN [Concomitant]
     Indication: ASTHMA

REACTIONS (5)
  - Convulsion [Recovered/Resolved]
  - Hypertension [Recovered/Resolved]
  - Demyelination [Unknown]
  - Gait disturbance [Recovered/Resolved]
  - Pain [Unknown]
